FAERS Safety Report 22181825 (Version 1)
Quarter: 2023Q2

REPORT INFORMATION
  Report Type: Spontaneous
  Country: AT (occurrence: AT)
  Receive Date: 20230406
  Receipt Date: 20230406
  Transmission Date: 20230721
  Serious: Yes (Hospitalization)
  Sender: FDA-Public Use
  Company Number: AT-ELI_LILLY_AND_COMPANY-AT202303009207

PATIENT
  Age: 28 Year
  Sex: Female

DRUGS (10)
  1. COMIRNATY [Suspect]
     Active Substance: TOZINAMERAN
     Indication: COVID-19 immunisation
     Dosage: DOSE 1, SINGLE
     Route: 065
     Dates: start: 20211112, end: 20211112
  2. METHOTREXATE SODIUM [Suspect]
     Active Substance: METHOTREXATE SODIUM
     Dosage: 15 MG, WEEKLY (1/W)
     Route: 065
     Dates: start: 202211
  3. CIBINQO [Suspect]
     Active Substance: ABROCITINIB
     Dosage: 200 MG, DAILY
     Route: 065
     Dates: start: 202212
  4. TRALOKINUMAB [Suspect]
     Active Substance: TRALOKINUMAB
     Indication: Eczema herpeticum
     Dosage: 2 DF, CYCLIC (2 DOSAGE FORM, OTHER(EVERY 2 WEEKS))
     Route: 065
     Dates: start: 202110
  5. TRALOKINUMAB [Suspect]
     Active Substance: TRALOKINUMAB
     Dosage: 3 DF (3 DOSAGE FORM, UNKNOWN)
     Route: 065
  6. OLUMIANT [Suspect]
     Active Substance: BARICITINIB
     Indication: Dermatitis atopic
     Dosage: 4 MG, DAILY
     Route: 048
     Dates: start: 202106, end: 202110
  7. OLUMIANT [Suspect]
     Active Substance: BARICITINIB
     Dosage: 4 MG, DAILY
     Route: 048
     Dates: start: 202112, end: 20221221
  8. OLUMIANT [Suspect]
     Active Substance: BARICITINIB
     Dosage: 4 MG, DAILY
     Route: 048
     Dates: start: 202302
  9. VALACYCLOVIR HYDROCHLORIDE [Concomitant]
     Active Substance: VALACYCLOVIR HYDROCHLORIDE
     Indication: Prophylaxis
     Dosage: 500 MG, DAILY
  10. UPADACITINIB [Concomitant]
     Active Substance: UPADACITINIB

REACTIONS (6)
  - Eczema herpeticum [Recovering/Resolving]
  - Asthma [Unknown]
  - Infection [Unknown]
  - Oral herpes [Unknown]
  - Oedema peripheral [Not Recovered/Not Resolved]
  - Condition aggravated [Unknown]

NARRATIVE: CASE EVENT DATE: 20210601
